FAERS Safety Report 25374308 (Version 1)
Quarter: 2025Q2

REPORT INFORMATION
  Report Type: Spontaneous
  Country: US (occurrence: US)
  Receive Date: 20250529
  Receipt Date: 20250529
  Transmission Date: 20250717
  Serious: Yes (Other)
  Sender: BLUEPRINT MEDICINES
  Company Number: US-Blueprint Medicines Corporation-2025-AER-01142

PATIENT
  Age: 81 Year
  Sex: Female

DRUGS (1)
  1. AYVAKIT [Suspect]
     Active Substance: AVAPRITINIB
     Indication: Systemic mastocytosis
     Route: 065
     Dates: start: 20250213

REACTIONS (4)
  - Wrist fracture [Recovering/Resolving]
  - Thrombosis [Unknown]
  - Swelling [Recovering/Resolving]
  - Haematoma [Unknown]
